FAERS Safety Report 7052762-5 (Version None)
Quarter: 2010Q4

REPORT INFORMATION
  Report Type: 
  Country: None (occurrence: None)
  Receive Date: 20101015
  Receipt Date: 20101012
  Transmission Date: 20110411
  Serious: Yes (Hospitalization, Disabling, Other)
  Sender: FDA-Public Use
  Company Number: 2010SP026653

PATIENT
  Age: 23 Year
  Sex: Female
  Weight: 90.7194 kg

DRUGS (3)
  1. NUVARING [Suspect]
     Indication: CONTRACEPTION
     Dates: start: 20020201, end: 20070313
  2. BIRTH CONTROL PILLS [Suspect]
     Indication: CONTRACEPTION
  3. DARVOCET-N 100 [Concomitant]

REACTIONS (28)
  - ABDOMINAL PAIN UPPER [None]
  - ACUTE RESPIRATORY DISTRESS SYNDROME [None]
  - ADJUSTMENT DISORDER [None]
  - ANTITHROMBIN III DEFICIENCY [None]
  - ANXIETY [None]
  - CERVICAL DYSPLASIA [None]
  - COSTOCHONDRITIS [None]
  - DEPRESSED MOOD [None]
  - DYSPNOEA EXERTIONAL [None]
  - EMOTIONAL DISORDER [None]
  - FACTOR V DEFICIENCY [None]
  - GASTROOESOPHAGEAL REFLUX DISEASE [None]
  - HIATUS HERNIA [None]
  - HYPONATRAEMIA [None]
  - MUSCULOSKELETAL PAIN [None]
  - PAIN [None]
  - PAPILLOMA VIRAL INFECTION [None]
  - PLEURAL EFFUSION [None]
  - PLEURITIC PAIN [None]
  - PNEUMONIA [None]
  - PULMONARY EMBOLISM [None]
  - PULMONARY INFARCTION [None]
  - RESPIRATORY FAILURE [None]
  - SEPSIS [None]
  - SLEEP APNOEA SYNDROME [None]
  - THROMBOSIS [None]
  - TREATMENT NONCOMPLIANCE [None]
  - URINARY TRACT INFECTION [None]
